FAERS Safety Report 5054503-X (Version None)
Quarter: 2006Q2

REPORT INFORMATION
  Report Type: 
  Country: None (occurrence: None)
  Receive Date: 20060616
  Receipt Date: 20060520
  Transmission Date: 20061013
  Serious: Yes (Life-Threatening, Hospitalization)
  Sender: FDA-Public Use
  Company Number: 223887

PATIENT
  Age: 74 Year
  Sex: Male
  Weight: 72.6 kg

DRUGS (3)
  1. AVASTIN [Suspect]
     Indication: COLON CANCER METASTATIC
     Dosage: 400 , Q2W, INTRAVENOUS
     Route: 042
     Dates: start: 20050707, end: 20060325
  2. FLUOROURACIL [Concomitant]
  3. LEUCOVORIN CALCIUM [Concomitant]

REACTIONS (1)
  - DUODENAL ULCER PERFORATION [None]
